FAERS Safety Report 15110394 (Version 1)
Quarter: 2018Q2

REPORT INFORMATION
  Report Type: Spontaneous
  Country: US (occurrence: US)
  Receive Date: 20180612
  Receipt Date: 20180612
  Transmission Date: 20180711
  Serious: No
  Sender: FDA-Public Use
  Company Number: None

PATIENT
  Age: 78 Year
  Sex: Female

DRUGS (2)
  1. BENLYSTA [Suspect]
     Active Substance: BELIMUMAB
     Indication: SYSTEMIC LUPUS ERYTHEMATOSUS
     Route: 058
     Dates: start: 20180416
  2. DEVICE AUTOINJECTOR [Suspect]
     Active Substance: DEVICE

REACTIONS (3)
  - Device malfunction [None]
  - Underdose [None]
  - Incorrect dose administered by device [None]

NARRATIVE: CASE EVENT DATE: 20170607
